FAERS Safety Report 8606472-0 (Version None)
Quarter: 2012Q3

REPORT INFORMATION
  Report Type: 
  Country: None (occurrence: None)
  Receive Date: 20120820
  Receipt Date: 20120813
  Transmission Date: 20120928
  Serious: Yes (Other)
  Sender: FDA-Public Use
  Company Number: TR-ASTRAZENECA-2012SE57202

PATIENT
  Age: 14 Year
  Sex: Female

DRUGS (3)
  1. MEROPENEM [Suspect]
     Indication: LOBAR PNEUMONIA
  2. VALPROATE SODIUM [Suspect]
     Indication: EPILEPSY
  3. VALPROATE SODIUM [Suspect]
     Dosage: INCREASED DOSE

REACTIONS (4)
  - CONDITION AGGRAVATED [None]
  - DRUG INTERACTION [None]
  - SOMNOLENCE [None]
  - DRUG LEVEL DECREASED [None]
